FAERS Safety Report 20783964 (Version 19)
Quarter: 2025Q2

REPORT INFORMATION
  Report Type: Report from Study
  Country: US (occurrence: US)
  Receive Date: 20220504
  Receipt Date: 20250623
  Transmission Date: 20250717
  Serious: Yes (Hospitalization, Other)
  Sender: TAKEDA
  Company Number: US-TAKEDA-2022TUS027405

PATIENT
  Sex: Male
  Weight: 86 kg

DRUGS (37)
  1. HUMAN IMMUNOGLOBULIN G [Suspect]
     Active Substance: HUMAN IMMUNOGLOBULIN G
     Indication: Hypergammaglobulinaemia
     Dosage: 8 GRAM, Q4WEEKS
     Dates: start: 20220414
  2. HUMAN IMMUNOGLOBULIN G [Suspect]
     Active Substance: HUMAN IMMUNOGLOBULIN G
     Indication: Immune system disorder
     Dosage: 8 GRAM, 1/WEEK
  3. HUMAN IMMUNOGLOBULIN G [Suspect]
     Active Substance: HUMAN IMMUNOGLOBULIN G
     Indication: IgG deficiency
  4. AUGMENTIN [Suspect]
     Active Substance: AMOXICILLIN\CLAVULANATE POTASSIUM
     Indication: Product used for unknown indication
  5. BENADRYL [Suspect]
     Active Substance: DIPHENHYDRAMINE HYDROCHLORIDE
     Indication: Product used for unknown indication
  6. PREDNISONE [Concomitant]
     Active Substance: PREDNISONE
  7. CEFUROXIME [Concomitant]
     Active Substance: CEFUROXIME
  8. ACETAMINOPHEN [Concomitant]
     Active Substance: ACETAMINOPHEN
  9. DIPHENHYDRAMINE [Concomitant]
     Active Substance: DIPHENHYDRAMINE
  10. EPINEPHRINE [Concomitant]
     Active Substance: EPINEPHRINE
  11. ZYPREXA [Concomitant]
     Active Substance: OLANZAPINE
  12. ALDACTONE [Concomitant]
     Active Substance: SPIRONOLACTONE
  13. BACLOFEN [Concomitant]
     Active Substance: BACLOFEN
  14. ALLOPURINOL [Concomitant]
     Active Substance: ALLOPURINOL
  15. GABAPENTIN [Concomitant]
     Active Substance: GABAPENTIN
  16. SPIRIVA [Concomitant]
     Active Substance: TIOTROPIUM BROMIDE MONOHYDRATE
  17. PANTOPRAZOLE SODIUM [Concomitant]
     Active Substance: PANTOPRAZOLE SODIUM
  18. MAGNESIUM OXIDE [Concomitant]
     Active Substance: MAGNESIUM OXIDE
  19. AMLODIPINE BESYLATE [Concomitant]
     Active Substance: AMLODIPINE BESYLATE
  20. MAGNESIUM [Concomitant]
     Active Substance: MAGNESIUM
  21. MELATONIN [Concomitant]
     Active Substance: MELATONIN
  22. CALCIUM\VITAMIN D [Concomitant]
     Active Substance: CALCIUM\VITAMIN D
  23. BUMETANIDE [Concomitant]
     Active Substance: BUMETANIDE
  24. METOPROLOL TARTRATE [Concomitant]
     Active Substance: METOPROLOL TARTRATE
  25. NUVIGIL [Concomitant]
     Active Substance: ARMODAFINIL
  26. POTASSIUM CHLORIDE [Concomitant]
     Active Substance: POTASSIUM CHLORIDE
  27. ALBUTEROL\IPRATROPIUM [Concomitant]
     Active Substance: ALBUTEROL\IPRATROPIUM
  28. BUDESONIDE [Concomitant]
     Active Substance: BUDESONIDE
  29. LACTOBACILLUS ACIDOPHILUS [Concomitant]
     Active Substance: LACTOBACILLUS ACIDOPHILUS
  30. Lmx [Concomitant]
  31. ALBUTEROL [Concomitant]
     Active Substance: ALBUTEROL
  32. METFORMIN HYDROCHLORIDE [Concomitant]
     Active Substance: METFORMIN HYDROCHLORIDE
  33. MEMANTINE [Concomitant]
     Active Substance: MEMANTINE
  34. WELLBUTRIN XL [Concomitant]
     Active Substance: BUPROPION HYDROCHLORIDE
  35. ASPIRIN [Concomitant]
     Active Substance: ASPIRIN
  36. ALBUTEROL SULFATE [Concomitant]
     Active Substance: ALBUTEROL SULFATE
  37. DIPHENHYDRAMINE HYDROCHLORIDE [Concomitant]
     Active Substance: DIPHENHYDRAMINE HYDROCHLORIDE

REACTIONS (29)
  - Pneumonia [Recovering/Resolving]
  - Clostridium difficile infection [Unknown]
  - Pharyngitis [Unknown]
  - Reflux laryngitis [Unknown]
  - Dehydration [Unknown]
  - Oropharyngeal discomfort [Unknown]
  - Angiogram abnormal [Unknown]
  - Respiratory tract infection [Unknown]
  - Chronic obstructive pulmonary disease [Unknown]
  - Bronchitis [Unknown]
  - COVID-19 [Unknown]
  - Haemoglobin decreased [Unknown]
  - Confusional state [Unknown]
  - Disturbance in attention [Unknown]
  - Brain fog [Unknown]
  - Seasonal allergy [Unknown]
  - Illness [Unknown]
  - Product dose omission issue [Unknown]
  - Mental status changes [Unknown]
  - Memory impairment [Unknown]
  - Aggression [Unknown]
  - Post-acute COVID-19 syndrome [Unknown]
  - Drug hypersensitivity [Unknown]
  - Asthma [Unknown]
  - Haematocrit decreased [Unknown]
  - Asthenia [Unknown]
  - Malaise [Unknown]
  - Diarrhoea [Unknown]
  - Fatigue [Unknown]
